FAERS Safety Report 20667362 (Version 1)
Quarter: 2022Q2

REPORT INFORMATION
  Report Type: Spontaneous
  Country: US (occurrence: US)
  Receive Date: 20220404
  Receipt Date: 20220404
  Transmission Date: 20220720
  Serious: No
  Sender: FDA-Public Use
  Company Number: US-BRISTOL-MYERS SQUIBB COMPANY-2022-013350

PATIENT
  Age: 70 Year
  Sex: Female

DRUGS (1)
  1. REVLIMID [Suspect]
     Active Substance: LENALIDOMIDE
     Indication: Pleuritic pain
     Dosage: EVERY DAY ON DAYS 1-28 EVERY 28 DAYS
     Route: 048

REACTIONS (3)
  - Dysphonia [Unknown]
  - Intentional product use issue [Unknown]
  - Oropharyngeal pain [Unknown]
